FAERS Safety Report 10520931 (Version 1)
Quarter: 2014Q4

REPORT INFORMATION
  Report Type: Spontaneous
  Country: FR (occurrence: FR)
  Receive Date: 20141016
  Receipt Date: 20141016
  Transmission Date: 20150528
  Serious: Yes (Other)
  Sender: FDA-Public Use
  Company Number: FR-009507513-1410FRA005767

PATIENT
  Age: 68 Year
  Sex: Female

DRUGS (2)
  1. INVANZ [Suspect]
     Active Substance: ERTAPENEM SODIUM
     Indication: URINARY TRACT INFECTION
     Dosage: 500 MG, QD
     Route: 042
     Dates: start: 20140903, end: 20140911
  2. AMIKACINE MYLAN [Concomitant]
     Active Substance: AMIKACIN
     Dosage: 500 MG, QD
     Route: 042
     Dates: start: 20140903

REACTIONS (3)
  - Condition aggravated [Recovered/Resolved]
  - Gait disturbance [Recovered/Resolved]
  - Balance disorder [Recovered/Resolved]

NARRATIVE: CASE EVENT DATE: 20140908
